FAERS Safety Report 10135949 (Version 2)
Quarter: 2014Q2

REPORT INFORMATION
  Report Type: Report from Study
  Country: GB (occurrence: GB)
  Receive Date: 20140429
  Receipt Date: 20140429
  Transmission Date: 20141212
  Serious: Yes (Hospitalization)
  Sender: FDA-Public Use
  Company Number: GB-ROCHE-1026008

PATIENT
  Age: 66 Year
  Sex: Female
  Weight: 74 kg

DRUGS (13)
  1. OBINUTUZUMAB [Suspect]
     Indication: NON-HODGKIN^S LYMPHOMA UNSPECIFIED HISTOLOGY INDOLENT
     Dosage: DOSE CONCENTRATION: 4.0 MG/ML
     Route: 042
     Dates: start: 20111222, end: 20111222
  2. CYCLOPHOSPHAMIDE [Suspect]
     Indication: NON-HODGKIN^S LYMPHOMA UNSPECIFIED HISTOLOGY INDOLENT
     Dosage: DATE OF LAST DOSE PRIOR TO SAE: 22/DEC/2011
     Route: 042
     Dates: start: 20111222
  3. VINCRISTINE [Suspect]
     Indication: NON-HODGKIN^S LYMPHOMA UNSPECIFIED HISTOLOGY INDOLENT
     Dosage: DATE OF LAST DOSE PRIOR TO SAE: 22/DEC/2011
     Route: 042
     Dates: start: 20111222
  4. PREDNISONE [Suspect]
     Indication: NON-HODGKIN^S LYMPHOMA UNSPECIFIED HISTOLOGY INDOLENT
     Dosage: DATE OF LAST DOSE PRIOR TO SAE: 22/DEC/2011
     Route: 048
     Dates: start: 20111222
  5. ALLOPURINOL [Concomitant]
     Indication: TUMOUR LYSIS SYNDROME
     Route: 065
     Dates: start: 20111212, end: 20120322
  6. DALTEPARIN [Concomitant]
     Indication: DEEP VEIN THROMBOSIS
     Route: 065
     Dates: start: 20110830, end: 20120617
  7. LANSOPRAZOLE [Concomitant]
     Indication: GASTROOESOPHAGEAL REFLUX DISEASE
     Route: 065
     Dates: start: 201109
  8. CELLUVISC [Concomitant]
     Indication: DRY EYE
     Route: 065
     Dates: start: 2011
  9. LACRI-LUBE (UNITED KINGDOM) [Concomitant]
     Indication: DRY EYE
     Route: 065
     Dates: start: 2011
  10. CANDESARTAN [Concomitant]
     Indication: HYPERTENSION
     Route: 065
     Dates: start: 2007
  11. PARACETAMOL [Concomitant]
     Route: 065
     Dates: start: 20111222, end: 20120524
  12. CHLORPHENAMINE [Concomitant]
     Route: 065
     Dates: start: 20111222, end: 20120524
  13. ONDANSETRON [Concomitant]
     Route: 065
     Dates: start: 20111222, end: 20120524

REACTIONS (2)
  - Nausea [Recovered/Resolved]
  - Vomiting [Recovered/Resolved]
